FAERS Safety Report 20609038 (Version 1)
Quarter: 2022Q1

REPORT INFORMATION
  Report Type: Spontaneous
  Country: US (occurrence: US)
  Receive Date: 20220317
  Receipt Date: 20220317
  Transmission Date: 20220423
  Serious: No
  Sender: FDA-Public Use
  Company Number: US-SMITH AND NEPHEW, INC-2021SMT00082

PATIENT
  Sex: Female
  Weight: 77.098 kg

DRUGS (4)
  1. COLLAGENASE SANTYL [Suspect]
     Active Substance: COLLAGENASE CLOSTRIDIUM HISTOLYTICUM
     Indication: Wound
     Dosage: UNK, EVERY 72 HOURS, EVERY 3 DAYS WHEN THE BANDAGE IS CHANGED
     Dates: start: 20211019, end: 202111
  2. COLLAGENASE SANTYL [Suspect]
     Active Substance: COLLAGENASE CLOSTRIDIUM HISTOLYTICUM
     Dosage: UNK, EVERY 72 HOURS, EVERY 3 DAYS WHEN THE BANDAGE IS CHANGED
     Dates: start: 202111
  3. COLLAGENASE SANTYL [Suspect]
     Active Substance: COLLAGENASE CLOSTRIDIUM HISTOLYTICUM
     Dosage: UNK, EVERY 72 HOURS, EVERY 3 DAYS WHEN THE BANDAGE IS CHANGED
     Dates: start: 202111
  4. ^A BUNCH OF THEM (MEDICATIONS)^ [Concomitant]

REACTIONS (3)
  - Drug ineffective [Not Recovered/Not Resolved]
  - Off label use [Not Recovered/Not Resolved]
  - Impaired healing [Unknown]

NARRATIVE: CASE EVENT DATE: 20210101
